FAERS Safety Report 7966046-1 (Version None)
Quarter: 2011Q4

REPORT INFORMATION
  Report Type: 
  Country: None (occurrence: None)
  Receive Date: 20111208
  Receipt Date: 20111205
  Transmission Date: 20120403
  Serious: No
  Sender: FDA-Public Use
  Company Number: US-PFIZER INC-2011296190

PATIENT

DRUGS (1)
  1. PREMARIN [Suspect]
     Dosage: 0.625 (NO UNITS PROVIDED)

REACTIONS (1)
  - BLOOD CHOLESTEROL INCREASED [None]
